FAERS Safety Report 5509509-0 (Version None)
Quarter: 2007Q4

REPORT INFORMATION
  Report Type: 
  Country: None (occurrence: None)
  Receive Date: 20071107
  Receipt Date: 20071030
  Transmission Date: 20080405
  Serious: Yes (Other)
  Sender: FDA-Public Use
  Company Number: GB-PFIZER INC-2007091695

PATIENT
  Sex: Female

DRUGS (1)
  1. DEPO-PROVERA SUSPENSION/INJ [Suspect]
     Indication: CONTRACEPTION
     Dosage: FREQ:INJECTION
     Route: 030
     Dates: start: 20070618, end: 20070618

REACTIONS (4)
  - ABORTION SPONTANEOUS [None]
  - DRUG INEFFECTIVE [None]
  - MENORRHAGIA [None]
  - UNINTENDED PREGNANCY [None]
